FAERS Safety Report 4533326-1 (Version None)
Quarter: 2004Q4

REPORT INFORMATION
  Report Type: 
  Country: None (occurrence: None)
  Receive Date: 20041221
  Receipt Date: 20041210
  Transmission Date: 20050328
  Serious: Yes (Death, Life-Threatening, Hospitalization)
  Sender: FDA-Public Use
  Company Number: BE-AMGEN-UK102554

PATIENT
  Sex: Female

DRUGS (1)
  1. AMG 099073 [Suspect]
     Indication: HYPERPARATHYROIDISM SECONDARY
     Route: 048
     Dates: start: 20041027

REACTIONS (4)
  - ANAESTHETIC COMPLICATION CARDIAC [None]
  - CIRCULATORY COLLAPSE [None]
  - POST PROCEDURAL COMPLICATION [None]
  - SURGERY [None]
